FAERS Safety Report 12835654 (Version 3)
Quarter: 2017Q1

REPORT INFORMATION
  Report Type: Spontaneous
  Country: IT (occurrence: IT)
  Receive Date: 20161011
  Receipt Date: 20170221
  Transmission Date: 20170428
  Serious: Yes (Life-Threatening)
  Sender: FDA-Public Use
  Company Number: IT-TEVA-700019ACC

PATIENT
  Age: 66 Year
  Sex: Female

DRUGS (7)
  1. METFORMINA TEVA - TEVA ITALIA S.R.L. [Suspect]
     Active Substance: METFORMIN HYDROCHLORIDE
     Indication: TYPE 2 DIABETES MELLITUS
     Dosage: 1050 MILLIGRAM DAILY;
     Dates: start: 20160201, end: 20160913
  2. RAMIPRIL. [Concomitant]
     Active Substance: RAMIPRIL
     Indication: PRODUCT USED FOR UNKNOWN INDICATION
  3. CALCITRIOL. [Concomitant]
     Active Substance: CALCITRIOL
     Indication: PRODUCT USED FOR UNKNOWN INDICATION
  4. ASCRIPTIN - SANOFI S.P.A.? [Concomitant]
     Indication: PRODUCT USED FOR UNKNOWN INDICATION
  5. FUROSEMIDE. [Concomitant]
     Active Substance: FUROSEMIDE
     Indication: PRODUCT USED FOR UNKNOWN INDICATION
  6. AMLODIPINE [Concomitant]
     Active Substance: AMLODIPINE BESYLATE
     Indication: PRODUCT USED FOR UNKNOWN INDICATION
  7. LANSOX - TAKEDA ITALIA S.P.A [Concomitant]
     Indication: PRODUCT USED FOR UNKNOWN INDICATION

REACTIONS (8)
  - Lactic acidosis [Unknown]
  - Diarrhoea [Unknown]
  - Leukocytosis [Unknown]
  - Vomiting [Unknown]
  - Infection [Unknown]
  - Amylase abnormal [Unknown]
  - Toxicity to various agents [Unknown]
  - Oedematous pancreatitis [Unknown]

NARRATIVE: CASE EVENT DATE: 20160312
